FAERS Safety Report 5916711-2 (Version None)
Quarter: 2008Q4

REPORT INFORMATION
  Report Type: 
  Country: None (occurrence: None)
  Receive Date: 20081013
  Receipt Date: 20081007
  Transmission Date: 20090506
  Serious: Yes (Hospitalization)
  Sender: FDA-Public Use
  Company Number: US-ABBOTT-08P-163-0476013-00

PATIENT
  Sex: Female
  Weight: 49.94 kg

DRUGS (11)
  1. HUMIRA [Suspect]
     Indication: CROHN'S DISEASE
     Dates: start: 20080716, end: 20080921
  2. HUMIRA [Suspect]
     Dates: start: 20080921
  3. LIALDA [Concomitant]
     Indication: CROHN'S DISEASE
     Dosage: 4 PILLS PER DAY
  4. FLUOXETINE [Concomitant]
     Indication: DEPRESSION
     Route: 048
  5. FOLIC ACID [Concomitant]
     Indication: VITAMIN SUPPLEMENTATION
     Route: 048
  6. LOESTRAN [Concomitant]
     Indication: CONTRACEPTION
     Route: 048
  7. FERROUS SULFATE [Concomitant]
     Indication: MINERAL SUPPLEMENTATION
     Route: 048
  8. ESOMEPRAZOLE MAGNESIUM [Concomitant]
     Indication: GASTRIC DISORDER
     Route: 048
  9. ALLOPURINOL [Concomitant]
     Indication: PAIN
     Dosage: AT HS
     Route: 048
  10. NYSTATIN [Concomitant]
     Indication: FUNGAL INFECTION
     Route: 048
     Dates: start: 20080901
  11. PREDNISONE [Concomitant]
     Indication: DRUG USE FOR UNKNOWN INDICATION

REACTIONS (10)
  - BLOOD POTASSIUM DECREASED [None]
  - CONSTIPATION [None]
  - CROHN'S DISEASE [None]
  - DIARRHOEA [None]
  - FREQUENT BOWEL MOVEMENTS [None]
  - FUNGAL INFECTION [None]
  - HAEMORRHAGE [None]
  - HYPOPHAGIA [None]
  - MUSCLE SPASMS [None]
  - PAIN [None]
